FAERS Safety Report 12960982 (Version 1)
Quarter: 2016Q4

REPORT INFORMATION
  Report Type: Spontaneous
  Country: US (occurrence: US)
  Receive Date: 20161121
  Receipt Date: 20161121
  Transmission Date: 20170207
  Serious: No
  Sender: FDA-Public Use
  Company Number: US-UPSHER-SMITH LABORATORIES, INC.-16001008

PATIENT
  Sex: Male

DRUGS (2)
  1. JANTOVEN [Suspect]
     Active Substance: WARFARIN SODIUM
     Indication: ANTICOAGULANT THERAPY
     Dosage: 1-1.5 TABLET, UNK
     Route: 048
     Dates: start: 2016
  2. JANTOVEN [Suspect]
     Active Substance: WARFARIN SODIUM
     Dosage: 2.5 MG, QD
     Route: 048
     Dates: start: 201601, end: 2016

REACTIONS (2)
  - Drug ineffective [Not Recovered/Not Resolved]
  - International normalised ratio decreased [Not Recovered/Not Resolved]

NARRATIVE: CASE EVENT DATE: 2016
